FAERS Safety Report 14086843 (Version 1)
Quarter: 2017Q4

REPORT INFORMATION
  Report Type: Spontaneous
  Country: DE (occurrence: DE)
  Receive Date: 20171013
  Receipt Date: 20171013
  Transmission Date: 20180321
  Serious: Yes (Life-Threatening, Hospitalization)
  Sender: FDA-Public Use
  Company Number: DE-LPDUSPRD-20171372

PATIENT
  Age: 78 Year
  Sex: Male

DRUGS (17)
  1. PREDNISOLON [Concomitant]
     Active Substance: PREDNISOLONE
     Dosage: 10 MG (5 MG  IN MORNING)
     Route: 048
  2. SPIRIVA [Concomitant]
     Active Substance: TIOTROPIUM BROMIDE MONOHYDRATE
     Dosage: 1 IN NOON
     Route: 065
  3. FERINJECT [Suspect]
     Active Substance: FERRIC CARBOXYMALTOSE
     Dosage: 1 ML
     Route: 041
     Dates: start: 20170921, end: 20170921
  4. RAMILICH [Concomitant]
     Active Substance: RAMIPRIL
     Dosage: 0.5 MG MORNING AND EVENING)
     Route: 065
  5. CLOPIDOGREL HEUMANN [Concomitant]
     Active Substance: CLOPIDOGREL BISULFATE
     Dosage: 75 MG IN MORNING
     Route: 065
  6. LANTAREL [Concomitant]
     Active Substance: METHOTREXATE SODIUM
     Dosage: (7.5MG) 1 SYRINGE EVERY 2 WK
     Route: 051
  7. METOHEXAL [Concomitant]
     Active Substance: METOPROLOL SUCCINATE
     Dosage: 0.5 MG MORNING AND EVENING
  8. PANTOPRAZOL TAD [Concomitant]
     Active Substance: PANTOPRAZOLE SODIUM
     Dosage: 20 MG IN EVENING
     Route: 065
  9. FOLSAN [Concomitant]
     Active Substance: FOLIC ACID
     Dosage: 5 MG,24 HOUR AFTER MTX ADMIN
     Route: 065
  10. METFORMIN AXCOUNT [Concomitant]
     Dosage: 1000 MG,0.5 EVENING
     Route: 065
  11. VIANI [Concomitant]
     Active Substance: FLUTICASONE PROPIONATE\SALMETEROL XINAFOATE
     Dosage: 50 MCG/250 MCG BD
     Route: 065
  12. ALLOPURINOL. [Concomitant]
     Active Substance: ALLOPURINOL
     Dosage: 100 MG ONCE DAILY IN MORNING
     Route: 065
  13. XARELTO [Concomitant]
     Active Substance: RIVAROXABAN
     Dosage: 15 MG QD
     Route: 065
  14. NITROLINGUAL AKUT [Concomitant]
     Dosage: 2 HUBS/ STROKE BEFORE BURDEN
     Route: 065
  15. SIMVA-ARISTO [Concomitant]
     Dosage: 40 MG, 1 IN EVENING
     Route: 065
  16. CALCIUM D3 FORTE [Concomitant]
     Dosage: 1 GRAIN IN MORNING
     Route: 065
  17. TORASEMID AL [Concomitant]
     Active Substance: TORSEMIDE
     Dosage: 10 MG IN MORNING AND NOON
     Route: 065

REACTIONS (5)
  - Respiratory arrest [Recovered/Resolved]
  - Arrhythmia [Recovered/Resolved]
  - Circulatory collapse [Recovered/Resolved]
  - Respiratory distress [Recovered/Resolved]
  - Loss of consciousness [Recovered/Resolved]

NARRATIVE: CASE EVENT DATE: 20170921
